FAERS Safety Report 9075893 (Version 1)
Quarter: 2013Q1

REPORT INFORMATION
  Report Type: Spontaneous
  Country: JP (occurrence: JP)
  Receive Date: 20130130
  Receipt Date: 20130130
  Transmission Date: 20140127
  Serious: Yes (Hospitalization)
  Sender: FDA-Public Use
  Company Number: JP-009507513-1102USA02909

PATIENT
  Age: 62 Year
  Sex: Male

DRUGS (4)
  1. JANUVIA TABLETS 50MG [Suspect]
     Indication: DIABETES MELLITUS
     Dosage: 50 MG, QD
     Route: 048
     Dates: start: 20100327
  2. AMARYL [Concomitant]
     Indication: DIABETES MELLITUS
     Dosage: 3 MG, QD
     Route: 048
     Dates: start: 2009
  3. MEDET [Concomitant]
     Indication: DIABETES MELLITUS
     Dosage: 250 MG, TID
     Route: 048
     Dates: start: 2009
  4. DIOVAN [Concomitant]
     Indication: HYPERTENSION
     Dosage: 80 MG, QD
     Route: 048
     Dates: start: 2009

REACTIONS (1)
  - Angina unstable [Recovered/Resolved]
